FAERS Safety Report 9289956 (Version 1)
Quarter: 2013Q2

REPORT INFORMATION
  Report Type: Spontaneous
  Country: US (occurrence: US)
  Receive Date: 20130515
  Receipt Date: 20130515
  Transmission Date: 20140414
  Serious: Yes (Death, Hospitalization)
  Sender: FDA-Public Use
  Company Number: US-JNJFOC-20130506427

PATIENT
  Age: 4 Decade
  Sex: Male

DRUGS (1)
  1. REOPRO [Suspect]
     Indication: PRODUCT USED FOR UNKNOWN INDICATION
     Dosage: 10 MG/5ML. 5 MLX1 VIALS
     Route: 065

REACTIONS (1)
  - Death [Fatal]
